FAERS Safety Report 24809479 (Version 2)
Quarter: 2025Q1

REPORT INFORMATION
  Report Type: Spontaneous
  Country: US (occurrence: US)
  Receive Date: 20250106
  Receipt Date: 20250207
  Transmission Date: 20250408
  Serious: No
  Sender: MYLAN
  Company Number: US-MYLANLABS-2024M1117098

PATIENT
  Age: 73 Year
  Sex: Male
  Weight: 95 kg

DRUGS (2)
  1. PROCTOFOAM HC [Suspect]
     Active Substance: HYDROCORTISONE ACETATE\PRAMOXINE HYDROCHLORIDE
     Indication: Haemorrhoids
     Route: 065
     Dates: start: 20241125
  2. PROCTOFOAM HC [Suspect]
     Active Substance: HYDROCORTISONE ACETATE\PRAMOXINE HYDROCHLORIDE
     Dosage: 1 PERCENT, TID (THREE TIMES DAILY)
     Route: 054
     Dates: start: 202412

REACTIONS (2)
  - Off label use [Unknown]
  - Product packaging quantity issue [Unknown]

NARRATIVE: CASE EVENT DATE: 20241125
